FAERS Safety Report 9338912 (Version 1)
Quarter: 2013Q2

REPORT INFORMATION
  Report Type: Spontaneous
  Country: JP (occurrence: JP)
  Receive Date: 20130610
  Receipt Date: 20130610
  Transmission Date: 20140414
  Serious: Yes (Other)
  Sender: FDA-Public Use
  Company Number: JP-PFIZER INC-2013174448

PATIENT
  Age: 66 Year
  Sex: Male

DRUGS (1)
  1. HALCION [Suspect]
     Dosage: 0.125 MG, 1X/DAY
     Route: 048

REACTIONS (1)
  - Hepatitis C [Unknown]
